FAERS Safety Report 18439449 (Version 1)
Quarter: 2020Q4

REPORT INFORMATION
  Report Type: Spontaneous
  Country: JP (occurrence: JP)
  Receive Date: 20201029
  Receipt Date: 20201029
  Transmission Date: 20210114
  Serious: Yes (Other)
  Sender: FDA-Public Use
  Company Number: JP-BAUSCH-BL-2020-017457

PATIENT
  Age: 59 Year
  Sex: Female

DRUGS (2)
  1. LUMICEF [Suspect]
     Active Substance: BRODALUMAB
     Indication: PSORIATIC ARTHROPATHY
     Dosage: SYRINGE, 7 MONTHS 12 DAYS (DURATION)
     Route: 058
     Dates: start: 20191009, end: 20200520
  2. LUMICEF [Suspect]
     Active Substance: BRODALUMAB
     Indication: PRODUCT USE IN UNAPPROVED INDICATION

REACTIONS (2)
  - Psoriatic arthropathy [Recovered/Resolved]
  - Product use in unapproved indication [Unknown]

NARRATIVE: CASE EVENT DATE: 20191009
